FAERS Safety Report 5786464-X (Version None)
Quarter: 2008Q2

REPORT INFORMATION
  Report Type: 
  Country: None (occurrence: None)
  Receive Date: 20080624
  Receipt Date: 20070726
  Transmission Date: 20081010
  Serious: No
  Sender: FDA-Public Use
  Company Number: US-ASTRAZENECA-2007UW18166

PATIENT
  Age: 45 Year
  Sex: Female
  Weight: 103 kg

DRUGS (7)
  1. PULMICORT-100 [Suspect]
     Indication: SEASONAL ALLERGY
     Route: 055
     Dates: start: 20060801
  2. PULMICORT-100 [Suspect]
     Indication: ASTHMA
     Route: 055
     Dates: start: 20060801
  3. ALBUTEROL [Concomitant]
  4. ZYRTEC [Concomitant]
  5. SINGULAIR [Concomitant]
  6. NASONEX [Concomitant]
  7. PULMICORT FLEXAHELER [Concomitant]

REACTIONS (1)
  - RETINAL INJURY [None]
